FAERS Safety Report 8435702-3 (Version None)
Quarter: 2012Q2

REPORT INFORMATION
  Report Type: 
  Country: None (occurrence: None)
  Receive Date: 20120614
  Receipt Date: 20120606
  Transmission Date: 20120825
  Serious: Yes (Other)
  Sender: FDA-Public Use
  Company Number: US-JNJFOC-20120605217

PATIENT
  Sex: Male

DRUGS (3)
  1. INTELENCE [Suspect]
     Indication: HIV INFECTION
     Route: 048
  2. PREZISTA [Suspect]
     Indication: HIV INFECTION
     Route: 048
  3. RITONAVIR [Suspect]
     Indication: HIV INFECTION
     Route: 065

REACTIONS (1)
  - RHABDOMYOLYSIS [None]
